FAERS Safety Report 24551215 (Version 3)
Quarter: 2025Q2

REPORT INFORMATION
  Report Type: Report from Study
  Country: US (occurrence: US)
  Receive Date: 20241025
  Receipt Date: 20250523
  Transmission Date: 20250716
  Serious: No
  Sender: SUNOVION
  Company Number: US-SMPA-2024SPA004444AA

PATIENT

DRUGS (2)
  1. ORGOVYX [Suspect]
     Active Substance: RELUGOLIX
     Indication: Prostate cancer
     Dosage: 120 MG, QD
     Route: 048
     Dates: start: 20240321
  2. BENZONATATE [Concomitant]
     Active Substance: BENZONATATE
     Route: 065

REACTIONS (8)
  - Influenza [Unknown]
  - Feeling abnormal [Unknown]
  - Brain fog [Unknown]
  - Arthralgia [Unknown]
  - Arthritis [Unknown]
  - Nasopharyngitis [Unknown]
  - Eye infection [Unknown]
  - Incorrect dose administered [Unknown]
